FAERS Safety Report 25482442 (Version 1)
Quarter: 2025Q2

REPORT INFORMATION
  Report Type: Spontaneous
  Country: US (occurrence: US)
  Receive Date: 20250626
  Receipt Date: 20250626
  Transmission Date: 20250716
  Serious: No
  Sender: SANDOZ
  Company Number: US-SANDOZ-SDZ2025US043064

PATIENT
  Sex: Female

DRUGS (1)
  1. HYRIMOZ [Suspect]
     Active Substance: ADALIMUMAB-ADAZ
     Indication: Product used for unknown indication
     Dosage: 40 MG, (PREFILLED PEN)( 40MG/0.4ML), EVERY 2 WEEKS
     Route: 058

REACTIONS (6)
  - Depressed mood [Unknown]
  - Abdominal discomfort [Unknown]
  - Dizziness [Unknown]
  - Erythema [Unknown]
  - Asthenia [Unknown]
  - Pruritus [Unknown]
